FAERS Safety Report 20211049 (Version 2)
Quarter: 2022Q1

REPORT INFORMATION
  Report Type: Spontaneous
  Country: US (occurrence: US)
  Receive Date: 20211221
  Receipt Date: 20220125
  Transmission Date: 20220423
  Serious: Yes (Other)
  Sender: FDA-Public Use
  Company Number: US-BAYER-2021A270731

PATIENT
  Age: 40 Year
  Sex: Female

DRUGS (1)
  1. MIRENA [Suspect]
     Active Substance: LEVONORGESTREL
     Dosage: 20?G/DAY
     Route: 015
     Dates: start: 20211204

REACTIONS (8)
  - Procedural pain [Recovered/Resolved]
  - Post procedural haemorrhage [Recovered/Resolved]
  - Pelvic inflammatory disease [None]
  - Complication of device insertion [None]
  - Diarrhoea [Recovering/Resolving]
  - Abdominal pain upper [None]
  - Weight increased [None]
  - Heavy menstrual bleeding [None]

NARRATIVE: CASE EVENT DATE: 20211201
